FAERS Safety Report 9349104 (Version 2)
Quarter: 2013Q2

REPORT INFORMATION
  Report Type: Report from Study
  Country: GR (occurrence: GR)
  Receive Date: 20130614
  Receipt Date: 20130626
  Transmission Date: 20140414
  Serious: Yes (Other)
  Sender: FDA-Public Use
  Company Number: GR-PFIZER INC-2013173698

PATIENT
  Sex: 0

DRUGS (3)
  1. CISPLATIN [Suspect]
     Indication: LIP AND/OR ORAL CAVITY CANCER
     Dosage: 1 CYCLES
  2. FLUOROURACIL [Suspect]
     Indication: LIP AND/OR ORAL CAVITY CANCER
     Dosage: 1 CYCLES
  3. TAXOTERE [Suspect]
     Indication: LIP AND/OR ORAL CAVITY CANCER
     Dosage: 1 CYCLES

REACTIONS (1)
  - Febrile neutropenia [Unknown]
